FAERS Safety Report 5849091-1 (Version None)
Quarter: 2008Q3

REPORT INFORMATION
  Report Type: 
  Country: None (occurrence: None)
  Receive Date: 20080819
  Receipt Date: 20080812
  Transmission Date: 20090109
  Serious: Yes (Hospitalization, Other)
  Sender: FDA-Public Use
  Company Number: PHHY2008BR18144

PATIENT
  Age: 83 Year
  Sex: Male

DRUGS (8)
  1. SANDOSTATIN LAR [Suspect]
     Indication: PITUITARY TUMOUR
     Dosage: 20 MG, QMO ON DAY 19TH
     Dates: start: 20070821
  2. SYNTHROID [Concomitant]
     Indication: THYROID NEOPLASM
     Dosage: 100 MG, QD
     Route: 048
  3. FUROSEMIDE [Concomitant]
     Indication: HYPERTENSION
     Dosage: 10 MG, QD
     Route: 048
  4. ASPIRIN [Concomitant]
     Indication: HYPERTENSION
     Dosage: 1 TABLET, QD
     Route: 048
  5. ENALAPRIL [Concomitant]
     Indication: HYPERTENSION
     Dosage: 10 MG, QD
     Route: 048
  6. FLUOXETINE [Concomitant]
     Dosage: 20 MG, QD
     Route: 048
  7. ATORVASTATIN CALCIUM [Concomitant]
     Indication: BLOOD CHOLESTEROL INCREASED
     Dosage: 10 MG, QD
     Route: 048
  8. OLCADIL [Concomitant]
     Indication: DEPRESSION
     Dosage: 2 MG, QD
     Route: 048

REACTIONS (2)
  - LUNG NEOPLASM [None]
  - THORACIC OPERATION [None]
